FAERS Safety Report 6980094-X (Version None)
Quarter: 2010Q3

REPORT INFORMATION
  Report Type: 
  Country: None (occurrence: None)
  Receive Date: 20100914
  Receipt Date: 20100910
  Transmission Date: 20110219
  Serious: Yes (Hospitalization, Other)
  Sender: FDA-Public Use
  Company Number: US-ASTRAZENECA-2007UW25119

PATIENT
  Age: 53 Year
  Sex: Female
  Weight: 111.1 kg

DRUGS (29)
  1. SEROQUEL [Suspect]
     Indication: DEPRESSION
     Route: 048
     Dates: start: 20020901
  2. SEROQUEL [Suspect]
     Indication: ANXIETY
     Route: 048
     Dates: start: 20020901
  3. SEROQUEL [Suspect]
     Indication: SCHIZOPHRENIA
     Route: 048
     Dates: start: 20020901
  4. SEROQUEL [Suspect]
     Dosage: 25 MG-150 MG
     Route: 048
     Dates: start: 20030514
  5. SEROQUEL [Suspect]
     Dosage: 25 MG-150 MG
     Route: 048
     Dates: start: 20030514
  6. SEROQUEL [Suspect]
     Dosage: 25 MG-150 MG
     Route: 048
     Dates: start: 20030514
  7. SEROQUEL [Suspect]
     Dosage: 100 MG
     Route: 048
     Dates: start: 20030101, end: 20040101
  8. SEROQUEL [Suspect]
     Dosage: 100 MG
     Route: 048
     Dates: start: 20030101, end: 20040101
  9. SEROQUEL [Suspect]
     Dosage: 100 MG
     Route: 048
     Dates: start: 20030101, end: 20040101
  10. SEROQUEL [Suspect]
     Route: 048
     Dates: start: 20040903
  11. SEROQUEL [Suspect]
     Route: 048
     Dates: start: 20040903
  12. SEROQUEL [Suspect]
     Route: 048
     Dates: start: 20040903
  13. SEROQUEL [Suspect]
     Route: 048
     Dates: start: 20060101, end: 20070101
  14. SEROQUEL [Suspect]
     Route: 048
     Dates: start: 20060101, end: 20070101
  15. SEROQUEL [Suspect]
     Route: 048
     Dates: start: 20060101, end: 20070101
  16. PAXIL [Concomitant]
     Route: 048
     Dates: start: 20040903
  17. LIPITOR [Concomitant]
     Route: 048
     Dates: start: 20040903
  18. LASIX [Concomitant]
     Dates: start: 20040903
  19. PLENDIL [Concomitant]
  20. DESYREL [Concomitant]
     Route: 048
     Dates: start: 20040903
  21. TOPROL-XL [Concomitant]
     Route: 048
     Dates: start: 20040903
  22. XANAX [Concomitant]
     Dosage: DAILY, PRN
     Route: 048
     Dates: start: 20040903
  23. KLOR-CON [Concomitant]
  24. AVANDAMET [Concomitant]
     Dosage: 2/1000, 1-1/2 IN THE MORNING AND 1 AT BEDTIME
     Dates: start: 20040903
  25. AVANDIA [Concomitant]
  26. VIOXX [Concomitant]
     Route: 048
     Dates: start: 20040903
  27. LOTREL [Concomitant]
     Dosage: 5/10 DAILY
     Route: 048
     Dates: start: 20040903
  28. ASPIRIN [Concomitant]
     Route: 048
     Dates: start: 20040903
  29. TRAZODONE HCL [Concomitant]
     Dates: start: 20040903

REACTIONS (7)
  - CHOLECYSTITIS ACUTE [None]
  - CHOLELITHIASIS [None]
  - COLLAPSE OF LUNG [None]
  - DIABETIC COMPLICATION [None]
  - DIABETIC FOOT [None]
  - OBESITY [None]
  - TYPE 2 DIABETES MELLITUS [None]
